FAERS Safety Report 7012685-4 (Version None)
Quarter: 2010Q3

REPORT INFORMATION
  Report Type: 
  Country: None (occurrence: None)
  Receive Date: 20100924
  Receipt Date: 20100913
  Transmission Date: 20110219
  Serious: Yes (Hospitalization, Other)
  Sender: FDA-Public Use
  Company Number: IL-ROCHE-727926

PATIENT

DRUGS (6)
  1. GANCICLOVIR SODIUM [Suspect]
     Route: 042
  2. GANCICLOVIR [Suspect]
     Dosage: DOSE: 30 MG/KG/DOSE UPTO 1 GM/DOSE
     Route: 048
  3. VALGANCICLOVIR HCL [Suspect]
     Route: 048
  4. MYCOPHENOLATE MOFETIL [Suspect]
     Indication: PROPHYLAXIS AGAINST TRANSPLANT REJECTION
     Route: 048
  5. TACROLIMUS [Suspect]
     Indication: PROPHYLAXIS AGAINST TRANSPLANT REJECTION
     Route: 065
  6. CORTICOSTEROIDS [Suspect]
     Indication: PROPHYLAXIS AGAINST TRANSPLANT REJECTION
     Route: 065

REACTIONS (7)
  - BLOOD CREATININE INCREASED [None]
  - CYTOMEGALOVIRUS INFECTION [None]
  - LEUKOPENIA [None]
  - NEPHROPATHY TOXIC [None]
  - RASH [None]
  - THROMBOCYTOPENIA [None]
  - TRANSPLANT REJECTION [None]
